FAERS Safety Report 22764828 (Version 4)
Quarter: 2024Q1

REPORT INFORMATION
  Report Type: Spontaneous
  Country: US (occurrence: US)
  Receive Date: 20230731
  Receipt Date: 20240124
  Transmission Date: 20240410
  Serious: Yes (Disabling)
  Sender: FDA-Public Use
  Company Number: US-SA-SAC20230727000799

PATIENT
  Age: 60 Year
  Sex: Female

DRUGS (4)
  1. DUPIXENT [Suspect]
     Active Substance: DUPILUMAB
     Indication: Dermatitis atopic
     Dosage: 600 MG, 1X
     Route: 058
     Dates: start: 20230710, end: 20230710
  2. DUPIXENT [Suspect]
     Active Substance: DUPILUMAB
     Indication: Eczema
     Dosage: 300 MG, QOW
     Route: 058
     Dates: start: 202307
  3. DUPIXENT [Suspect]
     Active Substance: DUPILUMAB
     Indication: Psoriasis
  4. DUPIXENT [Suspect]
     Active Substance: DUPILUMAB
     Indication: Neurodermatitis

REACTIONS (24)
  - Loss of personal independence in daily activities [Unknown]
  - Condition aggravated [Unknown]
  - Periorbital inflammation [Unknown]
  - Periorbital pain [Unknown]
  - Impaired quality of life [Unknown]
  - Eyelid pain [Recovering/Resolving]
  - Affective disorder [Unknown]
  - Emotional disorder [Unknown]
  - Eyelid disorder [Recovering/Resolving]
  - Eyelid exfoliation [Recovering/Resolving]
  - Eyelid skin dryness [Recovering/Resolving]
  - Eyelid irritation [Recovering/Resolving]
  - Skin disorder [Unknown]
  - Fatigue [Recovering/Resolving]
  - Ocular hyperaemia [Unknown]
  - Initial insomnia [Unknown]
  - Eyelids pruritus [Recovering/Resolving]
  - Pruritus [Recovering/Resolving]
  - Erythema of eyelid [Unknown]
  - Blepharitis [Unknown]
  - Condition aggravated [Unknown]
  - Eczema [Recovering/Resolving]
  - Therapeutic response shortened [Recovering/Resolving]
  - Product use in unapproved indication [Unknown]

NARRATIVE: CASE EVENT DATE: 20230101
